FAERS Safety Report 25423483 (Version 2)
Quarter: 2025Q2

REPORT INFORMATION
  Report Type: Spontaneous
  Country: CN (occurrence: CN)
  Receive Date: 20250611
  Receipt Date: 20250622
  Transmission Date: 20250716
  Serious: Yes (Hospitalization, Other)
  Sender: ABBVIE
  Company Number: CN-ABBVIE-6308518

PATIENT
  Age: 42 Year
  Sex: Female
  Weight: 67 kg

DRUGS (5)
  1. BOTOX [Suspect]
     Active Substance: ONABOTULINUMTOXINA
     Indication: Muscle hypertrophy
     Route: 030
     Dates: start: 20170310, end: 20170310
  2. BOTOX [Suspect]
     Active Substance: ONABOTULINUMTOXINA
     Indication: Muscle hypertrophy
     Route: 030
     Dates: start: 20250426, end: 20250426
  3. BOTOX [Suspect]
     Active Substance: ONABOTULINUMTOXINA
     Indication: Muscle hypertrophy
     Route: 030
     Dates: start: 20250426, end: 20250426
  4. POLYLACTIDE, L- [Concomitant]
     Active Substance: POLYLACTIDE, L-
     Indication: Skin cosmetic procedure
     Route: 058
     Dates: start: 20250426, end: 20250426
  5. TRANEXAMIC ACID [Concomitant]
     Active Substance: TRANEXAMIC ACID
     Indication: Product used for unknown indication
     Route: 065
     Dates: start: 20250426, end: 20250426

REACTIONS (17)
  - Botulism [Recovering/Resolving]
  - Injection site discomfort [Unknown]
  - COVID-19 [Unknown]
  - Speech disorder [Unknown]
  - Guillain-Barre syndrome [Unknown]
  - Mastication disorder [Unknown]
  - Nasopharyngitis [Unknown]
  - Productive cough [Not Recovered/Not Resolved]
  - Muscular weakness [Unknown]
  - Choking [Unknown]
  - Dysphonia [Unknown]
  - Vocal cord paralysis [Unknown]
  - Gastrointestinal tube insertion [Unknown]
  - Posture abnormal [Unknown]
  - Loss of personal independence in daily activities [Unknown]
  - Eyelid disorder [Unknown]
  - Dizziness [Unknown]

NARRATIVE: CASE EVENT DATE: 20250101
